FAERS Safety Report 5931795-3 (Version None)
Quarter: 2008Q4

REPORT INFORMATION
  Report Type: 
  Country: None (occurrence: None)
  Receive Date: 20081027
  Receipt Date: 20081015
  Transmission Date: 20090506
  Serious: Yes (Hospitalization, Other)
  Sender: FDA-Public Use
  Company Number: US-PFIZER INC-2007080115

PATIENT
  Age: 35 Year
  Sex: Female

DRUGS (2)
  1. CHANTIX [Suspect]
     Indication: SMOKING CESSATION THERAPY
     Dates: start: 20070101, end: 20070101
  2. TRILEPTAL [Concomitant]
     Dates: start: 20010101

REACTIONS (2)
  - CONVULSION [None]
  - INTENTIONAL DRUG MISUSE [None]
